FAERS Safety Report 8924932 (Version 2)
Quarter: 2012Q4

REPORT INFORMATION
  Report Type: Report from Study
  Country: BA (occurrence: BA)
  Receive Date: 20121126
  Receipt Date: 20121219
  Transmission Date: 20130627
  Serious: Yes (Hospitalization)
  Sender: FDA-Public Use
  Company Number: BA-009507513-1211BIH008857

PATIENT
  Age: 18 Year
  Sex: Female
  Weight: 50 kg

DRUGS (2)
  1. ASENAPINE MALEATE-SCHIZOPHRENIA [Suspect]
     Indication: SCHIZOPHRENIA
     Dosage: 2.5 mg, twice
     Dates: start: 20121031
  2. LORAZEPAM [Concomitant]
     Indication: ANXIETY
     Dosage: 1 mg, Frequency 1,1,2
     Dates: start: 20120915

REACTIONS (2)
  - Anxiety [Unknown]
  - Blood bilirubin increased [Unknown]
